FAERS Safety Report 4495149-1 (Version None)
Quarter: 2004Q4

REPORT INFORMATION
  Report Type: 
  Country: None (occurrence: None)
  Receive Date: 20041108
  Receipt Date: 20041102
  Transmission Date: 20050328
  Serious: Yes (Death, Hospitalization)
  Sender: FDA-Public Use
  Company Number: PHHO2004ES15531

PATIENT
  Age: 53 Year
  Sex: Male

DRUGS (2)
  1. NEORAL [Suspect]
     Indication: RENAL TRANSPLANT
     Dosage: 75 MG / DAY
     Route: 048
     Dates: start: 20000402, end: 20030423
  2. RAPAMYCIN [Concomitant]
     Dosage: 1.3 MG DAILY
     Dates: start: 20000402, end: 20030419

REACTIONS (2)
  - GASTROINTESTINAL HAEMORRHAGE [None]
  - MENINGITIS MENINGOCOCCAL [None]
